FAERS Safety Report 8951088 (Version 1)
Quarter: 2012Q4

REPORT INFORMATION
  Report Type: 
  Country: IT (occurrence: IT)
  Receive Date: 20121207
  Receipt Date: 20121207
  Transmission Date: 20130627
  Serious: Yes (Life-Threatening)
  Sender: FDA-Public Use
  Company Number: PHHY2012IT112040

PATIENT
  Age: 19 Year
  Sex: Female

DRUGS (1)
  1. GLIVEC [Suspect]
     Indication: NEUROFIBROMATOSIS
     Dosage: 500 mg, per day
     Route: 048
     Dates: start: 20120605, end: 20121114

REACTIONS (3)
  - Neurofibroma [Recovering/Resolving]
  - Neurofibrosarcoma [Recovering/Resolving]
  - Lymphadenopathy [Recovering/Resolving]
